FAERS Safety Report 6437987-1 (Version None)
Quarter: 2009Q4

REPORT INFORMATION
  Report Type: 
  Country: None (occurrence: None)
  Receive Date: 20091112
  Receipt Date: 20091103
  Transmission Date: 20100525
  Serious: Yes (Life-Threatening)
  Sender: FDA-Public Use
  Company Number: GXKR2009US12082

PATIENT

DRUGS (3)
  1. ROCURONIUM BROMIDE (NGX) [Suspect]
     Indication: ANAESTHESIA
     Dosage: UNK
     Route: 065
  2. SEVOFLURANE [Suspect]
     Indication: ANAESTHESIA
     Dosage: 2 AND 3%, INCREMENTAL DOSES
     Route: 065
  3. REMIFENTANIL [Suspect]
     Indication: ANAESTHESIA
     Dosage: UNK

REACTIONS (5)
  - BRADYCARDIA [None]
  - CARDIAC ARREST [None]
  - ELECTROCARDIOGRAM ST SEGMENT DEPRESSION [None]
  - PULSE ABSENT [None]
  - RESUSCITATION [None]
